FAERS Safety Report 15710778 (Version 1)
Quarter: 2018Q4

REPORT INFORMATION
  Report Type: Spontaneous
  Country: GB (occurrence: GB)
  Receive Date: 20181211
  Receipt Date: 20181211
  Transmission Date: 20190205
  Serious: Yes (Other)
  Sender: FDA-Public Use
  Company Number: GB-TEVA-2018-GB-984907

PATIENT
  Age: 27 Year
  Sex: Male
  Weight: 92.07 kg

DRUGS (1)
  1. PROPRANOLOL HYDROCHLORIDE. [Suspect]
     Active Substance: PROPRANOLOL HYDROCHLORIDE
     Indication: MIGRAINE
     Dosage: 160 DOSAGE FORMS DAILY;
     Route: 048
     Dates: start: 20170307

REACTIONS (4)
  - Pain [Unknown]
  - Peripheral coldness [Unknown]
  - Chest pain [Not Recovered/Not Resolved]
  - Paraesthesia [Not Recovered/Not Resolved]

NARRATIVE: CASE EVENT DATE: 20181023
